FAERS Safety Report 7153804-9 (Version None)
Quarter: 2010Q4

REPORT INFORMATION
  Report Type: 
  Country: None (occurrence: None)
  Receive Date: 20101213
  Receipt Date: 20101203
  Transmission Date: 20110411
  Serious: Yes (Hospitalization)
  Sender: FDA-Public Use
  Company Number: IT-ABBOTT-10P-083-0689604-00

PATIENT
  Sex: Female

DRUGS (3)
  1. VECLAM TABLETS [Suspect]
     Indication: BRONCHITIS CHRONIC
     Route: 048
     Dates: start: 20101103, end: 20101105
  2. OLPRESS [Concomitant]
     Indication: PRODUCT USED FOR UNKNOWN INDICATION
  3. PANTOPRAZOLO ACTAVIS [Concomitant]
     Indication: PRODUCT USED FOR UNKNOWN INDICATION

REACTIONS (3)
  - DYSPNOEA [None]
  - PRURITUS [None]
  - URTICARIA [None]
